FAERS Safety Report 14326969 (Version 1)
Quarter: 2017Q4

REPORT INFORMATION
  Report Type: Spontaneous
  Country: US (occurrence: US)
  Receive Date: 20171226
  Receipt Date: 20171226
  Transmission Date: 20180321
  Serious: No
  Sender: FDA-Public Use
  Company Number: None

PATIENT
  Age: 63 Year
  Sex: Female

DRUGS (1)
  1. PROLIA [Suspect]
     Active Substance: DENOSUMAB
     Indication: OSTEOPOROSIS
     Dosage: 60MG EVERY 6 MONTH SQ
     Route: 058
     Dates: start: 20170425

REACTIONS (3)
  - Arthralgia [None]
  - Back pain [None]
  - Spinal pain [None]

NARRATIVE: CASE EVENT DATE: 20170901
